FAERS Safety Report 7488599-2 (Version None)
Quarter: 2011Q2

REPORT INFORMATION
  Report Type: 
  Country: None (occurrence: None)
  Receive Date: 20110518
  Receipt Date: 20110509
  Transmission Date: 20111010
  Serious: Yes (Other)
  Sender: FDA-Public Use
  Company Number: US-ASTRAZENECA-2010SE26286

PATIENT
  Age: 89 Year
  Sex: Female

DRUGS (5)
  1. SYMBICORT [Suspect]
     Dosage: TOTAL DAILY DOSAGE: 160/4.5 TWO PUFFS, TWICE A DAY.
     Route: 055
  2. BUDESONIDE [Suspect]
     Indication: CHRONIC OBSTRUCTIVE PULMONARY DISEASE
     Route: 055
  3. OXYGEN [Concomitant]
  4. SYMBICORT [Suspect]
     Indication: CHRONIC OBSTRUCTIVE PULMONARY DISEASE
     Dosage: TOTAL DAILY DOSAGE: 80/4.5 TWO PUFFS, TWICE A DAY.
     Route: 055
  5. SYMBICORT [Suspect]
     Dosage: TOTAL DAILY DOSAGE: 80/4.5 MICROGRAMS, FREQUENCY: UNKNOWN.
     Route: 055

REACTIONS (11)
  - BREAST CANCER [None]
  - CARDIAC DISORDER [None]
  - CHOKING [None]
  - DRUG DISPENSING ERROR [None]
  - BRONCHITIS [None]
  - CHRONIC OBSTRUCTIVE PULMONARY DISEASE [None]
  - NEOPLASM MALIGNANT [None]
  - RENAL DISORDER [None]
  - COUGH [None]
  - RHINORRHOEA [None]
  - APHONIA [None]
